FAERS Safety Report 13666244 (Version 1)
Quarter: 2017Q2

REPORT INFORMATION
  Report Type: Spontaneous
  Country: US (occurrence: US)
  Receive Date: 20170619
  Receipt Date: 20170619
  Transmission Date: 20170830
  Serious: No
  Sender: FDA-Public Use
  Company Number: US-ROCHE-734893

PATIENT
  Age: 49 Year
  Sex: Male

DRUGS (8)
  1. CAPECITABINE. [Suspect]
     Active Substance: CAPECITABINE
     Dosage: 3 MORE CYCLES WITH DOSE REDUCED
     Route: 048
  2. OXALIPLATIN. [Suspect]
     Active Substance: OXALIPLATIN
     Indication: GASTRIC CANCER
     Dosage: ON DAY 1 FOR 3 CYCLES
     Route: 042
  3. OXALIPLATIN. [Suspect]
     Active Substance: OXALIPLATIN
     Dosage: ON DAY 1 FOR 3 MORE CYCLES AFTER SURGERY.
     Route: 042
  4. TRASTUZUMAB [Suspect]
     Active Substance: TRASTUZUMAB
     Indication: GASTRIC CANCER
     Dosage: ON DAY 1
     Route: 042
  5. TRASTUZUMAB [Suspect]
     Active Substance: TRASTUZUMAB
     Dosage: ON DAY 1:  POST SURGERY CHEMOTHERAPY (3 MORE CYCLES)
     Route: 042
  6. DOCETAXEL. [Suspect]
     Active Substance: DOCETAXEL
     Indication: GASTRIC CANCER
     Dosage: ON DAY 1 AND 8
     Route: 042
  7. DOCETAXEL. [Suspect]
     Active Substance: DOCETAXEL
     Dosage: 3 MORE CYCLES WITH A  REDUCED DOSE
     Route: 042
  8. CAPECITABINE. [Suspect]
     Active Substance: CAPECITABINE
     Indication: GASTRIC CANCER
     Dosage: TWICE A DAY, ON DAY 1 TO DAY 21, EVERY 3 WEEKS.
     Route: 048

REACTIONS (1)
  - Diarrhoea [Unknown]
